FAERS Safety Report 19352570 (Version 3)
Quarter: 2021Q3

REPORT INFORMATION
  Report Type: Other
  Country: CA (occurrence: CA)
  Receive Date: 20210531
  Receipt Date: 20210713
  Transmission Date: 20211014
  Serious: Yes (Hospitalization, Other)
  Sender: FDA-Public Use
  Company Number: CA-ROCHE-2839678

PATIENT
  Sex: Male

DRUGS (14)
  1. ALDACTONE [Concomitant]
     Active Substance: SPIRONOLACTONE
  2. FERAMAX [Concomitant]
     Active Substance: IRON\POLYSACCHARIDES
  3. AVASTIN [Suspect]
     Active Substance: BEVACIZUMAB
     Route: 042
     Dates: start: 20210113
  4. SEROQUEL [Concomitant]
     Active Substance: QUETIAPINE FUMARATE
  5. MELATONIN [Concomitant]
     Active Substance: MELATONIN
     Dosage: BEDTIME
  6. AVASTIN [Suspect]
     Active Substance: BEVACIZUMAB
     Indication: HEPATOCELLULAR CARCINOMA
     Route: 042
  7. TECENTRIQ [Suspect]
     Active Substance: ATEZOLIZUMAB
     Route: 042
     Dates: start: 20210113
  8. COVERSYL [Concomitant]
     Active Substance: PERINDOPRIL
  9. VITAMIN D [ERGOCALCIFEROL] [Concomitant]
     Active Substance: ERGOCALCIFEROL
  10. TECENTRIQ [Suspect]
     Active Substance: ATEZOLIZUMAB
     Indication: HEPATOCELLULAR CARCINOMA
     Route: 042
  11. LASIX [Concomitant]
     Active Substance: FUROSEMIDE
  12. TENOFOVIR [Concomitant]
     Active Substance: TENOFOVIR
  13. REACTINE (CANADA) [Concomitant]
     Active Substance: CETIRIZINE HYDROCHLORIDE
     Indication: HYPERSENSITIVITY
  14. VITAMIN B12 [Concomitant]
     Active Substance: CYANOCOBALAMIN

REACTIONS (3)
  - Hepatic encephalopathy [Not Recovered/Not Resolved]
  - Rash [Not Recovered/Not Resolved]
  - Gastric dilatation [Recovered/Resolved]
